FAERS Safety Report 7687404-9 (Version None)
Quarter: 2011Q3

REPORT INFORMATION
  Report Type: 
  Country: None (occurrence: None)
  Receive Date: 20110816
  Receipt Date: 20110810
  Transmission Date: 20111222
  Serious: Yes (Hospitalization, Other)
  Sender: FDA-Public Use
  Company Number: US-AMGEN-USASP2011029519

PATIENT
  Age: 54 Year
  Sex: Female

DRUGS (1)
  1. ENBREL [Suspect]
     Indication: RHEUMATOID ARTHRITIS
     Dosage: 50 MG, QWK
     Dates: start: 20100301, end: 20110701

REACTIONS (19)
  - BURSITIS [None]
  - JOINT SWELLING [None]
  - BLOOD DISORDER [None]
  - NEUROPATHY PERIPHERAL [None]
  - GAIT DISTURBANCE [None]
  - CONVULSION [None]
  - RHEUMATOID ARTHRITIS [None]
  - INJECTION SITE ERYTHEMA [None]
  - MEMORY IMPAIRMENT [None]
  - HALLUCINATION, VISUAL [None]
  - OSTEOARTHRITIS [None]
  - PAIN IN EXTREMITY [None]
  - WEIGHT INCREASED [None]
  - HALLUCINATION, AUDITORY [None]
  - ARTHRALGIA [None]
  - VITAMIN D DECREASED [None]
  - CONTUSION [None]
  - BRONCHITIS [None]
  - OEDEMA PERIPHERAL [None]
